FAERS Safety Report 4639146-1 (Version None)
Quarter: 2005Q2

REPORT INFORMATION
  Report Type: 
  Country: None (occurrence: None)
  Receive Date: 20050419
  Receipt Date: 20050415
  Transmission Date: 20051028
  Serious: Yes (Hospitalization, Other)
  Sender: FDA-Public Use
  Company Number: PHNU2005DE01654

PATIENT
  Sex: Male

DRUGS (2)
  1. CIPRALEX [Concomitant]
  2. LEPONEX / CLOZARIL (CLOZAPINE) [Suspect]
     Indication: MEDICATION ERROR
     Route: 048

REACTIONS (5)
  - ACCIDENTAL EXPOSURE [None]
  - DEPRESSED LEVEL OF CONSCIOUSNESS [None]
  - POISONING [None]
  - SOMNOLENCE [None]
  - UNRESPONSIVE TO VERBAL STIMULI [None]
